FAERS Safety Report 4847434-9 (Version None)
Quarter: 2005Q4

REPORT INFORMATION
  Report Type: 
  Country: None (occurrence: None)
  Receive Date: 20051205
  Receipt Date: 20051123
  Transmission Date: 20060501
  Serious: Yes (Hospitalization, Disabling, Other)
  Sender: FDA-Public Use
  Company Number: 2005161104

PATIENT
  Sex: Female
  Weight: 72.5755 kg

DRUGS (4)
  1. LIPITOR [Suspect]
     Indication: BLOOD CHOLESTEROL INCREASED
     Dosage: 10 MG (10 M G, 1 IN 1 D)
  2. PREMARIN [Concomitant]
  3. VICODIN [Concomitant]
  4. ZANAFLEX [Concomitant]

REACTIONS (9)
  - BODY HEIGHT DECREASED [None]
  - CHOKING [None]
  - DISEASE PROGRESSION [None]
  - INTERVERTEBRAL DISC DISORDER [None]
  - MOTOR DYSFUNCTION [None]
  - OSTEOARTHRITIS [None]
  - PAIN [None]
  - POSTOPERATIVE ADHESION [None]
  - SPINAL CORD COMPRESSION [None]
